FAERS Safety Report 25527698 (Version 3)
Quarter: 2025Q3

REPORT INFORMATION
  Report Type: Spontaneous
  Country: JP (occurrence: JP)
  Receive Date: 20250708
  Receipt Date: 20250805
  Transmission Date: 20251021
  Serious: Yes (Other)
  Sender: UCB
  Company Number: JP-UCBJ-CD202508869UCBPHAPROD

PATIENT
  Sex: Female

DRUGS (8)
  1. LEVETIRACETAM [Suspect]
     Active Substance: LEVETIRACETAM
     Indication: Epilepsy
     Route: 048
  2. PHENOBARBITAL [Concomitant]
     Active Substance: PHENOBARBITAL
     Indication: Epilepsy
  3. VALPROATE SODIUM [Concomitant]
     Active Substance: VALPROATE SODIUM
     Indication: Epilepsy
  4. CLOBAZAM [Concomitant]
     Active Substance: CLOBAZAM
     Indication: Epilepsy
  5. ESTAZOLAM [Concomitant]
     Active Substance: ESTAZOLAM
     Indication: Non-24-hour sleep-wake disorder
  6. LEMBOREXANT [Concomitant]
     Active Substance: LEMBOREXANT
     Indication: Non-24-hour sleep-wake disorder
  7. MELATONIN [Concomitant]
     Active Substance: MELATONIN
     Indication: Non-24-hour sleep-wake disorder
  8. RAMELTEON [Concomitant]
     Active Substance: RAMELTEON
     Indication: Non-24-hour sleep-wake disorder

REACTIONS (3)
  - Upper airway obstruction [Unknown]
  - Respiratory failure [Unknown]
  - Precocious puberty [Unknown]
